FAERS Safety Report 16023658 (Version 13)
Quarter: 2021Q2

REPORT INFORMATION
  Report Type: Report from Study
  Country: US (occurrence: US)
  Receive Date: 20190301
  Receipt Date: 20210506
  Transmission Date: 20210716
  Serious: Yes (Other)
  Sender: FDA-Public Use
  Company Number: PHEH2019US008857

PATIENT
  Age: 52 Year
  Sex: Female

DRUGS (2)
  1. GILENYA [Suspect]
     Active Substance: FINGOLIMOD HYDROCHLORIDE
     Indication: MULTIPLE SCLEROSIS
     Dosage: 0.5 MG, QD
     Route: 048
     Dates: start: 20190223
  2. GILENYA [Suspect]
     Active Substance: FINGOLIMOD HYDROCHLORIDE
     Dosage: 0.5 MG
     Route: 048
     Dates: start: 20210428

REACTIONS (18)
  - Memory impairment [Not Recovered/Not Resolved]
  - Fibromyalgia [Unknown]
  - Cognitive disorder [Unknown]
  - Headache [Recovered/Resolved]
  - Gait inability [Recovering/Resolving]
  - Arthropathy [Recovering/Resolving]
  - Sciatica [Not Recovered/Not Resolved]
  - Insomnia [Unknown]
  - Back pain [Not Recovered/Not Resolved]
  - Tremor [Unknown]
  - Blindness [Not Recovered/Not Resolved]
  - Headache [Recovered/Resolved]
  - Drug ineffective [Unknown]
  - Neoplasm malignant [Unknown]
  - Multiple sclerosis relapse [Not Recovered/Not Resolved]
  - Multiple sclerosis [Unknown]
  - Pain in extremity [Unknown]
  - Speech disorder [Unknown]

NARRATIVE: CASE EVENT DATE: 20190223
